FAERS Safety Report 24048357 (Version 1)
Quarter: 2024Q3

REPORT INFORMATION
  Report Type: Spontaneous
  Country: CN (occurrence: CN)
  Receive Date: 20240704
  Receipt Date: 20240704
  Transmission Date: 20241016
  Serious: No
  Sender: MERCK
  Company Number: CN-009507513-2406CHN009968

PATIENT
  Age: 83 Year
  Sex: Female
  Weight: 49.2 kg

DRUGS (3)
  1. LAGEVRIO [Suspect]
     Active Substance: MOLNUPIRAVIR
     Indication: Pneumonia
     Dosage: 0.8 GRAM, BID
     Route: 048
     Dates: start: 20240520, end: 20240525
  2. ROCEPHIN [Suspect]
     Active Substance: CEFTRIAXONE SODIUM
     Indication: Pneumonia
     Dosage: 2 GRAM, QD
     Route: 041
     Dates: start: 20240521, end: 20240524
  3. SODIUM CHLORIDE [Concomitant]
     Active Substance: SODIUM CHLORIDE
     Indication: Pneumonia
     Dosage: 100 ML, QD
     Route: 041
     Dates: start: 20240521, end: 20240524

REACTIONS (3)
  - White blood cell count decreased [Recovering/Resolving]
  - Neutrophil count decreased [Recovering/Resolving]
  - Product use in unapproved indication [Unknown]

NARRATIVE: CASE EVENT DATE: 20240520
